FAERS Safety Report 19727830 (Version 1)
Quarter: 2021Q3

REPORT INFORMATION
  Report Type: Spontaneous
  Country: DE (occurrence: DE)
  Receive Date: 20210820
  Receipt Date: 20210820
  Transmission Date: 20211014
  Serious: Yes (Hospitalization, Other)
  Sender: FDA-Public Use
  Company Number: DE-TEVA-2021-DE-1942247

PATIENT
  Age: 73 Year
  Sex: Female
  Weight: 95 kg

DRUGS (12)
  1. METHOTREXATE. [Suspect]
     Active Substance: METHOTREXATE
     Dosage: SCHEME
  2. TILIDIN [Concomitant]
     Active Substance: NALOXONE HYDROCHLORIDE\TILIDINE HYDROCHLORIDE
     Dosage: 50 MILLIGRAM DAILY; 0?0?1?0
  3. CARVEDILOL. [Concomitant]
     Active Substance: CARVEDILOL
     Dosage: 25 MILLIGRAM DAILY; 1?0?1?0
  4. METFORMIN [Concomitant]
     Active Substance: METFORMIN HYDROCHLORIDE
     Dosage: 2000 MILLIGRAM DAILY; 1?0?1?0
  5. COLECALCIFEROL (VITAMIN D) [Concomitant]
     Active Substance: CHOLECALCIFEROL
     Dosage: SCHEME
  6. INSULIN LISPRO/INSULIN LISPRO?ISOPHAN [Concomitant]
     Dosage: 40?0?25?0
  7. EDOXABAN [Concomitant]
     Active Substance: EDOXABAN TOSYLATE
     Dosage: 30 MILLIGRAM DAILY; 1?0?0?0
  8. ATORVASTATIN [Concomitant]
     Active Substance: ATORVASTATIN
     Dosage: 40 MILLIGRAM DAILY; 0?0?1?0
  9. TORASEMID [Concomitant]
     Active Substance: TORSEMIDE
     Dosage: 10 MILLIGRAM DAILY; 1?0?0?0
  10. CANDESARTAN/HYDROCHLOROTHIAZID [Concomitant]
     Active Substance: CANDESARTAN CILEXETIL\HYDROCHLOROTHIAZIDE
     Dosage: 1 DOSAGE FORMS DAILY; 32|12.5 MG, 1?0?0?0
  11. MOXONIDIN [Concomitant]
     Active Substance: MOXONIDINE
     Dosage: .4 MILLIGRAM DAILY; 1?0?1?0
  12. CERTOLIZUMAB PEGOL [Suspect]
     Active Substance: CERTOLIZUMAB PEGOL
     Dosage: SCHEME

REACTIONS (13)
  - General physical health deterioration [Unknown]
  - Dysuria [Unknown]
  - Vomiting [Unknown]
  - Abdominal pain [Unknown]
  - Dyspnoea [Unknown]
  - Electrocardiogram abnormal [Unknown]
  - Constipation [Unknown]
  - Weight increased [Unknown]
  - Cough [Unknown]
  - Tachypnoea [Unknown]
  - Pyrexia [Unknown]
  - Atrial fibrillation [Unknown]
  - Oedema peripheral [Unknown]
